FAERS Safety Report 13113683 (Version 3)
Quarter: 2020Q2

REPORT INFORMATION
  Report Type: Report from Study
  Country: KR (occurrence: KR)
  Receive Date: 20170113
  Receipt Date: 20200602
  Transmission Date: 20200713
  Serious: Yes (Hospitalization, Other)
  Sender: FDA-Public Use
  Company Number: KR-BRISTOL-MYERS SQUIBB COMPANY-BMS-2016-070036

PATIENT
  Age: 74 Year
  Sex: Female
  Weight: 49 kg

DRUGS (9)
  1. DACLATASVIR DIHYDROCHLORIDE [Suspect]
     Active Substance: DACLATASVIR DIHYDROCHLORIDE
     Indication: CHRONIC HEPATITIS C
     Dosage: 60 MG, QD
     Route: 065
     Dates: start: 20160810
  2. BEECOM [Concomitant]
     Indication: HYPOVITAMINOSIS
     Dosage: 2 TAB
     Route: 048
     Dates: start: 20140812
  3. SYNTHROID [Concomitant]
     Active Substance: LEVOTHYROXINE SODIUM
     Indication: BASEDOW^S DISEASE
     Dosage: 0.5 UNK, UNK
     Route: 048
     Dates: start: 20161025
  4. PHAZYME COMPLEX [Concomitant]
     Indication: DYSPEPSIA
     Dosage: 3 TAB, UNK
     Route: 048
     Dates: start: 20160824, end: 201609
  5. METHIMAZOLE. [Concomitant]
     Active Substance: METHIMAZOLE
     Indication: BASEDOW^S DISEASE
     Dosage: 0.5 TAB
     Route: 048
     Dates: start: 20150827
  6. ASUNAPREVIR [Suspect]
     Active Substance: ASUNAPREVIR
     Indication: CHRONIC HEPATITIS C
     Dosage: 100 MG, BID
     Route: 065
     Dates: start: 20160810, end: 20170124
  7. FOLIC ACID. [Concomitant]
     Active Substance: FOLIC ACID
     Indication: FOLATE DEFICIENCY
     Dosage: 1 DF, UNK
     Route: 048
     Dates: start: 20140812
  8. LANSTON [Concomitant]
     Active Substance: LANSOPRAZOLE
     Indication: PROPHYLAXIS AGAINST GASTROINTESTINAL ULCER
     Dosage: 1 TAB, UNK
     Route: 048
     Dates: start: 20160827, end: 201609
  9. XOTERNA [Concomitant]
     Indication: CHRONIC OBSTRUCTIVE PULMONARY DISEASE
     Dosage: 1 DF, DOSE-110/50UG 30 DOSE (TIMES)
     Dates: start: 20160802

REACTIONS (4)
  - Hepatitis acute [Recovered/Resolved]
  - Pseudomonas infection [Recovering/Resolving]
  - Pain in extremity [Recovered/Resolved]
  - Cough [Recovering/Resolving]

NARRATIVE: CASE EVENT DATE: 201608
